FAERS Safety Report 12774313 (Version 1)
Quarter: 2016Q3

REPORT INFORMATION
  Report Type: Spontaneous
  Country: US (occurrence: US)
  Receive Date: 20160923
  Receipt Date: 20160923
  Transmission Date: 20161109
  Serious: No
  Sender: FDA-Public Use
  Company Number: US-PFIZER INC-2016442929

PATIENT

DRUGS (2)
  1. AMITRIPTYLINE HCL [Suspect]
     Active Substance: AMITRIPTYLINE
  2. CELEBREX [Suspect]
     Active Substance: CELECOXIB

REACTIONS (1)
  - Drug hypersensitivity [Not Recovered/Not Resolved]
